FAERS Safety Report 6438280-3 (Version None)
Quarter: 2009Q4

REPORT INFORMATION
  Report Type: 
  Country: None (occurrence: None)
  Receive Date: 20091112
  Receipt Date: 20091102
  Transmission Date: 20100525
  Serious: Yes (Other)
  Sender: FDA-Public Use
  Company Number: PHHY2009RS47703

PATIENT
  Age: 54 Year
  Sex: Female

DRUGS (4)
  1. TEGRETOL-XR [Suspect]
     Indication: ELECTROENCEPHALOGRAM ABNORMAL
     Dosage: 400 MG, QD
     Dates: start: 20091014, end: 20091029
  2. CAVINTON [Concomitant]
  3. CARDIOPIRIN [Concomitant]
     Dosage: 1 X 100 MG,UNK
  4. ZOLPIDEM TARTRATE [Concomitant]
     Dosage: 1 X 5 MG, UNK

REACTIONS (4)
  - DIZZINESS [None]
  - FATIGUE [None]
  - NAUSEA [None]
  - VERTIGO [None]
